FAERS Safety Report 20590077 (Version 1)
Quarter: 2022Q1

REPORT INFORMATION
  Report Type: Report from Study
  Country: TH (occurrence: TH)
  Receive Date: 20220314
  Receipt Date: 20220314
  Transmission Date: 20220423
  Serious: Yes (Hospitalization)
  Sender: FDA-Public Use
  Company Number: TH-BAYER-2022A033162

PATIENT
  Age: 71 Year
  Sex: Male

DRUGS (1)
  1. STIVARGA [Suspect]
     Active Substance: REGORAFENIB
     Indication: Colorectal cancer
     Dosage: 160 MG, QD
     Route: 048
     Dates: start: 20211229

REACTIONS (3)
  - Haemoptysis [Unknown]
  - Gait inability [Unknown]
  - Drug ineffective [None]

NARRATIVE: CASE EVENT DATE: 20220101
